FAERS Safety Report 9544073 (Version 1)
Quarter: 2013Q3

REPORT INFORMATION
  Report Type: Spontaneous
  Country: US (occurrence: US)
  Receive Date: 20130923
  Receipt Date: 20130923
  Transmission Date: 20140515
  Serious: No
  Sender: FDA-Public Use
  Company Number: US-009507513-1309USA007255

PATIENT
  Age: 79 Year
  Sex: Male

DRUGS (2)
  1. NASONEX [Suspect]
     Indication: NASAL POLYPS
     Dosage: ONE TO TWO SPRAYS IN EACH NOSTRIL AS NEEDED
     Route: 055
  2. NASONEX [Suspect]
     Indication: HYPERSENSITIVITY

REACTIONS (3)
  - Drug ineffective [Unknown]
  - Underdose [Unknown]
  - Product quality issue [Unknown]
